FAERS Safety Report 8849537 (Version 1)
Quarter: 2012Q4

REPORT INFORMATION
  Report Type: Spontaneous
  Country: US (occurrence: None)
  Receive Date: 20121018
  Receipt Date: 20121018
  Transmission Date: 20130627
  Serious: No
  Sender: FDA-Public Use
  Company Number: None

PATIENT
  Age: 57 Year
  Sex: Female
  Weight: 79.38 kg

DRUGS (1)
  1. ZICAM [Suspect]
     Indication: COLD
     Dosage: 4 sprays, every 3 hours, po
     Route: 048
     Dates: start: 20121013, end: 20121017

REACTIONS (2)
  - Ageusia [None]
  - Anosmia [None]
